FAERS Safety Report 4522619-X (Version None)
Quarter: 2004Q4

REPORT INFORMATION
  Report Type: 
  Country: None (occurrence: None)
  Receive Date: 20041209
  Receipt Date: 20041015
  Transmission Date: 20050328
  Serious: Yes (Hospitalization, Other)
  Sender: FDA-Public Use
  Company Number: PHFR2004GB03886

PATIENT
  Sex: Female

DRUGS (2)
  1. GLEEVEC [Suspect]
     Indication: CHRONIC MYELOID LEUKAEMIA
     Route: 048
  2. IMODIUM ^JANSSEN^ [Suspect]
     Indication: DIARRHOEA
     Route: 048

REACTIONS (4)
  - DIARRHOEA [None]
  - INTESTINAL OBSTRUCTION [None]
  - OVERDOSE [None]
  - PELVIC MASS [None]
